FAERS Safety Report 7406050-5 (Version None)
Quarter: 2011Q2

REPORT INFORMATION
  Report Type: 
  Country: None (occurrence: None)
  Receive Date: 20110411
  Receipt Date: 20110126
  Transmission Date: 20111010
  Serious: Yes (Other)
  Sender: FDA-Public Use
  Company Number: B0696255A

PATIENT
  Sex: Female
  Weight: 59 kg

DRUGS (1)
  1. DEROXAT [Suspect]
     Indication: DEPRESSION
     Route: 048
     Dates: start: 20091001

REACTIONS (6)
  - INSOMNIA [None]
  - WRONG TECHNIQUE IN DRUG USAGE PROCESS [None]
  - DRUG WITHDRAWAL SYNDROME [None]
  - DIZZINESS [None]
  - TEARFULNESS [None]
  - AFFECTIVE DISORDER [None]
